FAERS Safety Report 12648551 (Version 1)
Quarter: 2016Q3

REPORT INFORMATION
  Report Type: Spontaneous
  Country: CN (occurrence: CN)
  Receive Date: 20160812
  Receipt Date: 20160812
  Transmission Date: 20161109
  Serious: Yes (Life-Threatening)
  Sender: FDA-Public Use
  Company Number: CN-ASTRAZENECA-2016SE85745

PATIENT
  Age: 15868 Day
  Sex: Male
  Weight: 60 kg

DRUGS (5)
  1. TICAGRELOR [Suspect]
     Active Substance: TICAGRELOR
     Indication: ACUTE MYOCARDIAL INFARCTION
     Dosage: 90.0MG ONCE/SINGLE ADMINISTRATION
     Route: 048
     Dates: start: 20151130, end: 20151130
  2. ASPIRIN. [Suspect]
     Active Substance: ASPIRIN
     Dosage: 0.1
     Route: 048
     Dates: start: 20151130, end: 20151130
  3. ASPIRIN. [Suspect]
     Active Substance: ASPIRIN
     Dosage: 0.3
     Route: 048
     Dates: start: 20151130, end: 20151130
  4. TICAGRELOR [Suspect]
     Active Substance: TICAGRELOR
     Indication: ACUTE MYOCARDIAL INFARCTION
     Dosage: 180.0MG ONCE/SINGLE ADMINISTRATION
     Route: 048
     Dates: start: 20151130, end: 20151130
  5. HEPARIN [Concomitant]
     Active Substance: HEPARIN SODIUM
     Indication: ACUTE MYOCARDIAL INFARCTION
     Dosage: 5000.0IU UNKNOWN

REACTIONS (2)
  - Thrombocytopenia [Recovered/Resolved]
  - Gingival bleeding [Unknown]

NARRATIVE: CASE EVENT DATE: 20151130
